FAERS Safety Report 25913143 (Version 1)
Quarter: 2025Q4

REPORT INFORMATION
  Report Type: Spontaneous
  Country: EU (occurrence: EU)
  Receive Date: 20251013
  Receipt Date: 20251013
  Transmission Date: 20260117
  Serious: Yes (Other)
  Sender: MYLAN
  Company Number: None

PATIENT
  Age: 102 Year
  Sex: Female

DRUGS (48)
  1. LANSOPRAZOLE [Suspect]
     Active Substance: LANSOPRAZOLE
     Indication: Gastrooesophageal reflux disease
     Dosage: 30 MILLIGRAM, QD (30 MG / DAY,)
  2. LANSOPRAZOLE [Suspect]
     Active Substance: LANSOPRAZOLE
     Dosage: 30 MILLIGRAM, QD (30 MG / DAY,)
     Route: 048
  3. LANSOPRAZOLE [Suspect]
     Active Substance: LANSOPRAZOLE
     Dosage: 30 MILLIGRAM, QD (30 MG / DAY,)
     Route: 048
  4. LANSOPRAZOLE [Suspect]
     Active Substance: LANSOPRAZOLE
     Dosage: 30 MILLIGRAM, QD (30 MG / DAY,)
  5. POLYETHYLENE GLYCOLS [Suspect]
     Active Substance: POLYETHYLENE GLYCOLS
     Indication: Constipation
     Dosage: 1 DOSAGE FORM, PRN (IF NEEDED)
  6. POLYETHYLENE GLYCOLS [Suspect]
     Active Substance: POLYETHYLENE GLYCOLS
     Dosage: 1 DOSAGE FORM, PRN (IF NEEDED)
     Route: 048
  7. POLYETHYLENE GLYCOLS [Suspect]
     Active Substance: POLYETHYLENE GLYCOLS
     Dosage: 1 DOSAGE FORM, PRN (IF NEEDED)
     Route: 048
  8. POLYETHYLENE GLYCOLS [Suspect]
     Active Substance: POLYETHYLENE GLYCOLS
     Dosage: 1 DOSAGE FORM, PRN (IF NEEDED)
  9. KARDEGIC [Suspect]
     Active Substance: ASPIRIN DL-LYSINE
     Indication: Thrombosis prophylaxis
     Dosage: 1 DOSAGE FORM, QD (POWDER FOR ORAL SOLUTION IN SINGLE-DOSE SACHET, 1 SACHET IN THE MORNING)
  10. KARDEGIC [Suspect]
     Active Substance: ASPIRIN DL-LYSINE
     Dosage: 1 DOSAGE FORM, QD (POWDER FOR ORAL SOLUTION IN SINGLE-DOSE SACHET, 1 SACHET IN THE MORNING)
     Route: 048
  11. KARDEGIC [Suspect]
     Active Substance: ASPIRIN DL-LYSINE
     Dosage: 1 DOSAGE FORM, QD (POWDER FOR ORAL SOLUTION IN SINGLE-DOSE SACHET, 1 SACHET IN THE MORNING)
     Route: 048
  12. KARDEGIC [Suspect]
     Active Substance: ASPIRIN DL-LYSINE
     Dosage: 1 DOSAGE FORM, QD (POWDER FOR ORAL SOLUTION IN SINGLE-DOSE SACHET, 1 SACHET IN THE MORNING)
  13. CALCIUM CARBONATE [Suspect]
     Active Substance: CALCIUM CARBONATE
     Indication: Mineral supplementation
     Dosage: 1 DOSAGE FORM, QD (POWDER FOR ORAL SUSPENSION IN SACHET, 1 SACHET IN THE MORNING)
  14. CALCIUM CARBONATE [Suspect]
     Active Substance: CALCIUM CARBONATE
     Dosage: 1 DOSAGE FORM, QD (POWDER FOR ORAL SUSPENSION IN SACHET, 1 SACHET IN THE MORNING)
     Route: 048
  15. CALCIUM CARBONATE [Suspect]
     Active Substance: CALCIUM CARBONATE
     Dosage: 1 DOSAGE FORM, QD (POWDER FOR ORAL SUSPENSION IN SACHET, 1 SACHET IN THE MORNING)
     Route: 048
  16. CALCIUM CARBONATE [Suspect]
     Active Substance: CALCIUM CARBONATE
     Dosage: 1 DOSAGE FORM, QD (POWDER FOR ORAL SUSPENSION IN SACHET, 1 SACHET IN THE MORNING)
  17. ACETYLLEUCINE [Suspect]
     Active Substance: ACETYLLEUCINE
     Indication: Vertigo
     Dosage: 2 DOSAGE FORM, QD (1 MORNING AND 1 EVENING)
     Dates: start: 20241218
  18. ACETYLLEUCINE [Suspect]
     Active Substance: ACETYLLEUCINE
     Dosage: 2 DOSAGE FORM, QD (1 MORNING AND 1 EVENING)
     Route: 048
     Dates: start: 20241218
  19. ACETYLLEUCINE [Suspect]
     Active Substance: ACETYLLEUCINE
     Dosage: 2 DOSAGE FORM, QD (1 MORNING AND 1 EVENING)
     Route: 048
     Dates: start: 20241218
  20. ACETYLLEUCINE [Suspect]
     Active Substance: ACETYLLEUCINE
     Dosage: 2 DOSAGE FORM, QD (1 MORNING AND 1 EVENING)
     Dates: start: 20241218
  21. TRIMEPRAZINE [Suspect]
     Active Substance: TRIMEPRAZINE
     Indication: Sleep disorder
     Dosage: 1.5 DOSAGE FORM, QD (1.5 TABLETS IN THE EVENING) (SCORED )
  22. TRIMEPRAZINE [Suspect]
     Active Substance: TRIMEPRAZINE
     Dosage: 1.5 DOSAGE FORM, QD (1.5 TABLETS IN THE EVENING) (SCORED )
     Route: 048
  23. TRIMEPRAZINE [Suspect]
     Active Substance: TRIMEPRAZINE
     Dosage: 1.5 DOSAGE FORM, QD (1.5 TABLETS IN THE EVENING) (SCORED )
     Route: 048
  24. TRIMEPRAZINE [Suspect]
     Active Substance: TRIMEPRAZINE
     Dosage: 1.5 DOSAGE FORM, QD (1.5 TABLETS IN THE EVENING) (SCORED )
  25. AMLODIPINE [Suspect]
     Active Substance: AMLODIPINE BESYLATE
     Indication: Hypertension
     Dosage: 1 DOSAGE FORM, QD (1 TABLET/DAY)
  26. AMLODIPINE [Suspect]
     Active Substance: AMLODIPINE BESYLATE
     Dosage: 1 DOSAGE FORM, QD (1 TABLET/DAY)
     Route: 048
  27. AMLODIPINE [Suspect]
     Active Substance: AMLODIPINE BESYLATE
     Dosage: 1 DOSAGE FORM, QD (1 TABLET/DAY)
     Route: 048
  28. AMLODIPINE [Suspect]
     Active Substance: AMLODIPINE BESYLATE
     Dosage: 1 DOSAGE FORM, QD (1 TABLET/DAY)
  29. LOPRAZOLAM [Suspect]
     Active Substance: LOPRAZOLAM
     Indication: Sleep disorder
     Dosage: 1 DOSAGE FORM, QD (SCORED TABLET, 1 TABLET/DAY)
  30. LOPRAZOLAM [Suspect]
     Active Substance: LOPRAZOLAM
     Dosage: 1 DOSAGE FORM, QD (SCORED TABLET, 1 TABLET/DAY)
     Route: 048
  31. LOPRAZOLAM [Suspect]
     Active Substance: LOPRAZOLAM
     Dosage: 1 DOSAGE FORM, QD (SCORED TABLET, 1 TABLET/DAY)
     Route: 048
  32. LOPRAZOLAM [Suspect]
     Active Substance: LOPRAZOLAM
     Dosage: 1 DOSAGE FORM, QD (SCORED TABLET, 1 TABLET/DAY)
  33. DAFALGAN [Suspect]
     Active Substance: ACETAMINOPHEN
     Indication: Pain
     Dosage: UNK
  34. DAFALGAN [Suspect]
     Active Substance: ACETAMINOPHEN
     Dosage: UNK
     Route: 048
  35. DAFALGAN [Suspect]
     Active Substance: ACETAMINOPHEN
     Dosage: UNK
     Route: 048
  36. DAFALGAN [Suspect]
     Active Substance: ACETAMINOPHEN
     Dosage: UNK
  37. IXPRIM [Suspect]
     Active Substance: ACETAMINOPHEN\TRAMADOL HYDROCHLORIDE
     Indication: Pain
     Dosage: UNK
  38. IXPRIM [Suspect]
     Active Substance: ACETAMINOPHEN\TRAMADOL HYDROCHLORIDE
     Dosage: UNK
     Route: 048
  39. IXPRIM [Suspect]
     Active Substance: ACETAMINOPHEN\TRAMADOL HYDROCHLORIDE
     Dosage: UNK
     Route: 048
  40. IXPRIM [Suspect]
     Active Substance: ACETAMINOPHEN\TRAMADOL HYDROCHLORIDE
     Dosage: UNK
  41. SOLIFENACIN SUCCINATE [Suspect]
     Active Substance: SOLIFENACIN SUCCINATE
     Indication: Product used for unknown indication
     Dosage: UNK (1 IN THE EVENING)
  42. SOLIFENACIN SUCCINATE [Suspect]
     Active Substance: SOLIFENACIN SUCCINATE
     Dosage: UNK (1 IN THE EVENING)
     Route: 048
  43. SOLIFENACIN SUCCINATE [Suspect]
     Active Substance: SOLIFENACIN SUCCINATE
     Dosage: UNK (1 IN THE EVENING)
     Route: 048
  44. SOLIFENACIN SUCCINATE [Suspect]
     Active Substance: SOLIFENACIN SUCCINATE
     Dosage: UNK (1 IN THE EVENING)
  45. BACTRIM [Suspect]
     Active Substance: SULFAMETHOXAZOLE\TRIMETHOPRIM
     Indication: Urinary tract infection
     Dosage: UNK
     Dates: start: 20250220, end: 20250227
  46. BACTRIM [Suspect]
     Active Substance: SULFAMETHOXAZOLE\TRIMETHOPRIM
     Dosage: UNK
     Route: 048
     Dates: start: 20250220, end: 20250227
  47. BACTRIM [Suspect]
     Active Substance: SULFAMETHOXAZOLE\TRIMETHOPRIM
     Dosage: UNK
     Route: 048
     Dates: start: 20250220, end: 20250227
  48. BACTRIM [Suspect]
     Active Substance: SULFAMETHOXAZOLE\TRIMETHOPRIM
     Dosage: UNK
     Dates: start: 20250220, end: 20250227

REACTIONS (1)
  - Fall [Recovered/Resolved]

NARRATIVE: CASE EVENT DATE: 20250224
